FAERS Safety Report 4506176-X (Version None)
Quarter: 2004Q4

REPORT INFORMATION
  Report Type: 
  Country: None (occurrence: None)
  Receive Date: 20041119
  Receipt Date: 20041008
  Transmission Date: 20050328
  Serious: Yes (Hospitalization, Other)
  Sender: FDA-Public Use
  Company Number: JP-MERCK-0411USA02688

PATIENT
  Age: 22 Year
  Sex: Male
  Weight: 47 kg

DRUGS (10)
  1. FOSAMAX [Suspect]
     Indication: OSTEOPOROSIS
     Route: 048
     Dates: start: 20040908, end: 20041001
  2. BLOPRESS [Concomitant]
     Indication: PROTEIN URINE PRESENT
     Route: 048
     Dates: end: 20041006
  3. ALFAROL [Concomitant]
     Indication: OSTEOPOROSIS PROPHYLAXIS
     Route: 048
     Dates: start: 20020601
  4. GASTER [Concomitant]
     Indication: PROPHYLAXIS
     Route: 048
     Dates: start: 20020601
  5. WARFARIN POTASSIUM [Concomitant]
     Indication: GLOMERULONEPHRITIS FOCAL
     Route: 048
  6. LIPITOR [Concomitant]
     Indication: HYPERLIPIDAEMIA
     Route: 048
  7. PREDNISOLONE [Concomitant]
     Indication: GLOMERULONEPHRITIS FOCAL
     Route: 048
     Dates: start: 20040908
  8. NEORAL [Concomitant]
     Indication: GLOMERULONEPHRITIS FOCAL
     Route: 048
     Dates: start: 20021001
  9. ALDACTONE [Concomitant]
     Indication: POLYURIA
     Route: 048
     Dates: end: 20040927
  10. FUNGIZONE [Concomitant]
     Indication: PROPHYLAXIS
     Dates: start: 20040908

REACTIONS (1)
  - HEPATIC FUNCTION ABNORMAL [None]
